FAERS Safety Report 5796263-0 (Version None)
Quarter: 2008Q3

REPORT INFORMATION
  Report Type: 
  Country: None (occurrence: None)
  Receive Date: 20080701
  Receipt Date: 20080626
  Transmission Date: 20090109
  Serious: Yes (Other)
  Sender: FDA-Public Use
  Company Number: US-ASTRAZENECA-2008UW10033

PATIENT
  Age: 83 Year
  Sex: Male
  Weight: 68 kg

DRUGS (4)
  1. CRESTOR [Suspect]
     Indication: BLOOD CHOLESTEROL
     Route: 048
     Dates: start: 20041001
  2. ASPIRIN [Concomitant]
  3. PLAVIX [Concomitant]
  4. COREG [Concomitant]

REACTIONS (2)
  - MUSCLE SPASMS [None]
  - TENDONITIS [None]
